FAERS Safety Report 13650516 (Version 1)
Quarter: 2017Q2

REPORT INFORMATION
  Report Type: Spontaneous
  Country: US (occurrence: US)
  Receive Date: 20170614
  Receipt Date: 20170614
  Transmission Date: 20170830
  Serious: Yes (Hospitalization, Other)
  Sender: FDA-Public Use
  Company Number: US-AMGEN-USASP2017089220

PATIENT
  Sex: Female

DRUGS (2)
  1. ENBREL [Suspect]
     Active Substance: ETANERCEPT
     Dosage: UNK UNK, QWK
     Route: 065
     Dates: start: 2016
  2. ENBREL [Suspect]
     Active Substance: ETANERCEPT
     Indication: RHEUMATOID ARTHRITIS
     Dosage: UNK UNK, QWK
     Route: 065
     Dates: start: 1993, end: 2013

REACTIONS (7)
  - Rheumatoid arthritis [Unknown]
  - Injection site pruritus [Unknown]
  - Intentional product misuse [Unknown]
  - Injection site erythema [Unknown]
  - Red blood cell count decreased [Unknown]
  - Ovarian cancer stage III [Unknown]
  - Injection site rash [Unknown]

NARRATIVE: CASE EVENT DATE: 1999
